FAERS Safety Report 12558321 (Version 1)
Quarter: 2016Q3

REPORT INFORMATION
  Report Type: Spontaneous
  Country: US (occurrence: US)
  Receive Date: 20160714
  Receipt Date: 20160714
  Transmission Date: 20161109
  Serious: No
  Sender: FDA-Public Use
  Company Number: US-ALLERGAN-1648632

PATIENT
  Sex: Female

DRUGS (1)
  1. TRIPTORELIN PAMOATE 3.75MG SUS [Suspect]
     Active Substance: TRIPTORELIN PAMOATE
     Indication: ENDOMETRIOSIS
     Dosage: UNK, UNKNOWN
     Route: 050

REACTIONS (1)
  - Product use issue [Unknown]
